FAERS Safety Report 9867301 (Version 6)
Quarter: 2014Q3

REPORT INFORMATION
  Report Type: Spontaneous
  Country: JP (occurrence: JP)
  Receive Date: 20140204
  Receipt Date: 20140728
  Transmission Date: 20150326
  Serious: Yes (Death, Hospitalization)
  Sender: FDA-Public Use
  Company Number: JP-JNJFOC-20140119267

PATIENT
  Age: 72 Year
  Sex: Female
  Weight: 24.95 kg

DRUGS (15)
  1. MAINTATE [Concomitant]
     Active Substance: BISOPROLOL FUMARATE
     Indication: HYPERTROPHIC CARDIOMYOPATHY
     Route: 048
     Dates: end: 20140128
  2. STELARA [Suspect]
     Active Substance: USTEKINUMAB
     Indication: PSORIASIS
     Route: 058
     Dates: start: 20131112, end: 20131112
  3. NEUROTROPIN [Concomitant]
     Active Substance: NEUROTROPIN
     Indication: FIBROMYALGIA
     Dosage: 16 LU
     Route: 048
     Dates: end: 20140128
  4. CRESTOR [Concomitant]
     Active Substance: ROSUVASTATIN CALCIUM
     Indication: HYPERLIPIDAEMIA
     Route: 048
     Dates: end: 20140122
  5. FEBURIC [Concomitant]
     Active Substance: FEBUXOSTAT
     Indication: HYPERURICAEMIA
     Route: 048
     Dates: end: 20140122
  6. XYZAL [Concomitant]
     Active Substance: LEVOCETIRIZINE DIHYDROCHLORIDE
     Indication: DERMATITIS ALLERGIC
     Route: 048
     Dates: start: 20120507, end: 20140128
  7. METOLATE [Suspect]
     Active Substance: METHOTREXATE
     Indication: FIBROMYALGIA
     Route: 048
     Dates: start: 20130415, end: 20140122
  8. LENDORMIN [Concomitant]
     Active Substance: BROTIZOLAM
     Indication: INSOMNIA
     Route: 048
     Dates: end: 20140122
  9. CIBENOL [Concomitant]
     Active Substance: CIFENLINE
     Indication: SINUS TACHYCARDIA
     Route: 048
     Dates: end: 20140128
  10. STELARA [Suspect]
     Active Substance: USTEKINUMAB
     Indication: PSORIASIS
     Route: 058
     Dates: start: 20131210, end: 20131210
  11. LYRICA [Concomitant]
     Active Substance: PREGABALIN
     Indication: FIBROMYALGIA
     Route: 048
     Dates: start: 20130611, end: 20140128
  12. DEPAS [Concomitant]
     Active Substance: ETIZOLAM
     Indication: INSOMNIA
     Route: 048
     Dates: end: 20140122
  13. EDIROL [Concomitant]
     Active Substance: ELDECALCITOL
     Indication: OSTEOPOROSIS
     Route: 048
     Dates: start: 20131001, end: 20140128
  14. RECALBON [Concomitant]
     Active Substance: MINODRONIC ACID
     Indication: OSTEOPOROSIS
     Route: 048
     Dates: start: 20131001, end: 20140128
  15. PURSENNID [Concomitant]
     Active Substance: SENNOSIDES A AND B CALCIUM
     Indication: CONSTIPATION
     Route: 048
     Dates: end: 20140128

REACTIONS (3)
  - Disseminated intravascular coagulation [Fatal]
  - Sepsis [Fatal]
  - Urinary tract infection [Fatal]

NARRATIVE: CASE EVENT DATE: 20140122
